FAERS Safety Report 9097872 (Version 2)
Quarter: 2013Q1

REPORT INFORMATION
  Report Type: Spontaneous
  Country: US (occurrence: US)
  Receive Date: 20130212
  Receipt Date: 20130226
  Transmission Date: 20140127
  Serious: Yes (Other)
  Sender: FDA-Public Use
  Company Number: US-BRISTOL-MYERS SQUIBB COMPANY-17365164

PATIENT
  Age: 60 Year
  Sex: Male
  Weight: 87 kg

DRUGS (6)
  1. METFORMIN HCL [Suspect]
     Indication: DIABETES MELLITUS
     Dosage: 11MAR2009-24JUN2009 AS CONMED
     Route: 048
     Dates: start: 20090625
  2. LISINOPRIL [Concomitant]
     Dosage: 18MAR2009-11APR2010:20MG?5APR2010-ONG:40MG
     Route: 048
     Dates: start: 20090318
  3. DOXAZOSIN [Concomitant]
     Route: 048
     Dates: start: 20090325, end: 20100301
  4. LOVASTATIN [Concomitant]
     Route: 048
     Dates: start: 200803, end: 20110211
  5. VIAGRA [Concomitant]
     Route: 048
     Dates: start: 2008
  6. TRAMADOL [Concomitant]
     Route: 048
     Dates: start: 1990

REACTIONS (2)
  - Cardiac failure [Recovered/Resolved]
  - Congestive cardiomyopathy [Recovered/Resolved]
